FAERS Safety Report 26157395 (Version 1)
Quarter: 2025Q4

REPORT INFORMATION
  Report Type: Report from Study
  Country: US (occurrence: US)
  Receive Date: 20251215
  Receipt Date: 20251215
  Transmission Date: 20260117
  Serious: No
  Sender: SOLENO THERAPEUTICS
  Company Number: US-SOLENO THERAPEUTICS, INC.-SOL2025000889

PATIENT
  Age: 16 Year
  Sex: Female
  Weight: 99 kg

DRUGS (10)
  1. DIAZOXIDE CHOLINE [Suspect]
     Active Substance: DIAZOXIDE CHOLINE
     Indication: Prader-Willi syndrome
     Dosage: UNK
     Route: 048
     Dates: start: 20251112, end: 2025
  2. DIAZOXIDE CHOLINE [Suspect]
     Active Substance: DIAZOXIDE CHOLINE
     Dosage: 225 MILLIGRAM, QD
     Route: 048
     Dates: start: 2025, end: 2025
  3. DIAZOXIDE CHOLINE [Suspect]
     Active Substance: DIAZOXIDE CHOLINE
     Dosage: 150 MILLIGRAM, QD
     Route: 048
     Dates: start: 2025
  4. ACETYLCYSTEINE [Concomitant]
     Active Substance: ACETYLCYSTEINE
     Indication: Product used for unknown indication
     Dosage: UNK
     Route: 065
  5. CALCIUM\CHOLECALCIFEROL [Concomitant]
     Active Substance: CALCIUM\CHOLECALCIFEROL
     Indication: Product used for unknown indication
     Dosage: UNK
     Route: 065
  6. CALCIUM CARBONATE [Concomitant]
     Active Substance: CALCIUM CARBONATE
     Indication: Product used for unknown indication
     Dosage: UNK
     Route: 065
  7. GENOTROPIN [Concomitant]
     Active Substance: SOMATROPIN
     Indication: Product used for unknown indication
     Dosage: UNK
     Route: 065
  8. GUANFACINE [Concomitant]
     Active Substance: GUANFACINE
     Indication: Product used for unknown indication
     Dosage: UNK
     Route: 065
  9. LEXAPRO [Concomitant]
     Active Substance: ESCITALOPRAM OXALATE
     Indication: Product used for unknown indication
     Dosage: UNK
     Route: 065
  10. NORGESTREL/ETHINYL ESTRADIOL [Concomitant]
     Active Substance: ETHINYL ESTRADIOL\NORGESTREL
     Indication: Product used for unknown indication
     Dosage: UNK
     Route: 065

REACTIONS (4)
  - Chest pain [Unknown]
  - Rash pruritic [Unknown]
  - Urticaria [Unknown]
  - Oedema [Unknown]

NARRATIVE: CASE EVENT DATE: 20250101
